FAERS Safety Report 6854488-7 (Version None)
Quarter: 2010Q3

REPORT INFORMATION
  Report Type: 
  Country: None (occurrence: None)
  Receive Date: 20100717
  Receipt Date: 20080107
  Transmission Date: 20110219
  Serious: No
  Sender: FDA-Public Use
  Company Number: US-PFIZER INC-2008003129

PATIENT
  Sex: Female

DRUGS (6)
  1. CHANTIX [Suspect]
     Indication: SMOKING CESSATION THERAPY
     Route: 048
     Dates: start: 20071225, end: 20080101
  2. FOLIC ACID [Concomitant]
  3. LEVOXYL [Concomitant]
  4. VITAMIN D [Concomitant]
  5. ZESTRIL [Concomitant]
  6. INSULIN [Concomitant]

REACTIONS (2)
  - VOMITING [None]
  - WEIGHT DECREASED [None]
